FAERS Safety Report 6427752-3 (Version None)
Quarter: 2009Q4

REPORT INFORMATION
  Report Type: 
  Country: None (occurrence: None)
  Receive Date: 20091105
  Receipt Date: 20091028
  Transmission Date: 20100525
  Serious: Yes (Other)
  Sender: FDA-Public Use
  Company Number: ES-RANBAXY-2009RR-28875

PATIENT
  Age: 55 Year
  Sex: Female

DRUGS (3)
  1. ASPIRIN [Suspect]
  2. PARACETAMOL [Suspect]
     Dosage: UNK MG, UNK
  3. DICLOFENAC [Suspect]

REACTIONS (3)
  - PRURITUS [None]
  - SKIN DISORDER [None]
  - URTICARIA [None]
